FAERS Safety Report 9188839 (Version 2)
Quarter: 2013Q2

REPORT INFORMATION
  Report Type: Spontaneous
  Country: US (occurrence: US)
  Receive Date: 20130326
  Receipt Date: 20130529
  Transmission Date: 20140414
  Serious: Yes (Other)
  Sender: FDA-Public Use
  Company Number: US-PFIZER INC-2013092946

PATIENT
  Age: 69 Year
  Sex: Female

DRUGS (4)
  1. CHANTIX [Suspect]
     Dosage: UNK
     Dates: start: 20070521, end: 20070928
  2. CHANTIX [Suspect]
     Dosage: CONTINUING PACK, UNK
     Dates: start: 20070726
  3. PAROXETINE HYDROCHLORIDE [Concomitant]
     Dosage: 40 MG, UNK
     Dates: start: 20070726
  4. COMBIVENT [Concomitant]
     Indication: DYSPNOEA
     Dosage: UNK
     Dates: start: 20070716

REACTIONS (1)
  - Suicidal ideation [Unknown]
